FAERS Safety Report 20326396 (Version 1)
Quarter: 2022Q1

REPORT INFORMATION
  Report Type: Spontaneous
  Country: US (occurrence: US)
  Receive Date: 20220112
  Receipt Date: 20220112
  Transmission Date: 20220423
  Serious: Yes (Other)
  Sender: FDA-Public Use
  Company Number: US-SANOFI-00922613

PATIENT
  Age: 68 Year
  Sex: Female

DRUGS (1)
  1. DUPIXENT [Suspect]
     Active Substance: DUPILUMAB
     Indication: Dermatitis atopic
     Dosage: UNK, 1X
     Dates: start: 20220103, end: 20220103

REACTIONS (4)
  - Angioedema [Unknown]
  - Lip swelling [Unknown]
  - Swollen tongue [Unknown]
  - Eye swelling [Unknown]

NARRATIVE: CASE EVENT DATE: 20220103
